FAERS Safety Report 5090790-X (Version None)
Quarter: 2006Q3

REPORT INFORMATION
  Report Type: 
  Country: None (occurrence: None)
  Receive Date: 20060823
  Receipt Date: 20060816
  Transmission Date: 20061208
  Serious: Yes (Life-Threatening, Hospitalization)
  Sender: FDA-Public Use
  Company Number: 2006-07-0094

PATIENT
  Age: 27 Year
  Sex: Female
  Weight: 61 kg

DRUGS (7)
  1. PEG-INTRON [Suspect]
     Indication: HEPATITIS C
     Dosage: 100-60* MCG QW SUBCUTANEOUS; SEE IMAGE
     Route: 058
     Dates: start: 20060130, end: 20060523
  2. PEG-INTRON [Suspect]
     Indication: HEPATITIS C
     Dosage: 100-60* MCG QW SUBCUTANEOUS; SEE IMAGE
     Route: 058
     Dates: start: 20060530, end: 20060530
  3. PEG-INTRON [Suspect]
     Indication: HEPATITIS C
     Dosage: 100-60* MCG QW SUBCUTANEOUS; SEE IMAGE
     Route: 058
     Dates: start: 20060130, end: 20060606
  4. PEG-INTRON [Suspect]
     Indication: HEPATITIS C
     Dosage: 100-60* MCG QW SUBCUTANEOUS; SEE IMAGE
     Route: 058
     Dates: start: 20060606, end: 20060606
  5. REBETOL [Suspect]
     Indication: HEPATITIS C
     Dosage: 600 MG ORAL
     Route: 048
     Dates: start: 20060130, end: 20060605
  6. INCREMIN SYRUP [Concomitant]
  7. FERROUS CITRATE [Concomitant]

REACTIONS (8)
  - ANTINUCLEAR ANTIBODY POSITIVE [None]
  - AUTOANTIBODY POSITIVE [None]
  - AUTOIMMUNE HEPATITIS [None]
  - HEPATIC ENCEPHALOPATHY [None]
  - HEPATIC FAILURE [None]
  - HEPATITIS FULMINANT [None]
  - PROTHROMBIN TIME PROLONGED [None]
  - THERAPY NON-RESPONDER [None]
